FAERS Safety Report 8353530 (Version 6)
Quarter: 2012Q4

REPORT INFORMATION
  Report Type: 
  Country: US (occurrence: US)
  Receive Date: 20120125
  Receipt Date: 20121220
  Transmission Date: 20130627
  Serious: Yes (Hospitalization)
  Sender: FDA-Public Use
  Company Number: US-BAYER-2012-007406

PATIENT
  Age: 73 Year
  Sex: Male
  Weight: 84.35 kg

DRUGS (18)
  1. SORAFENIB (RAF KINASE INHIBITOR) [Suspect]
     Indication: THYROID CANCER
     Dosage: UNK
     Dates: start: 20110210
  2. SORAFENIB (RAF KINASE INHIBITOR) [Suspect]
     Indication: THYROID CANCER
     Dosage: 600 mg daily, cycle 22
     Route: 048
     Dates: start: 20120112, end: 20120119
  3. SORAFENIB (RAF KINASE INHIBITOR) [Suspect]
     Indication: THYROID CANCER
     Dosage: TOTAL DAILY DOSE: 600 mg
     Route: 048
     Dates: start: 20120125
  4. PLACEBO [Suspect]
     Indication: THYROID CANCER
     Dosage: UNK
     Dates: start: 20100603, end: 20110210
  5. ASPIRIN [Concomitant]
     Indication: SUPPLEMENTATION THERAPY
     Dosage: 81 mg, QD
     Dates: start: 2000
  6. CALCIUM W/VITAMIN D NOS [Concomitant]
     Indication: SUPPLEMENTATION THERAPY
     Dosage: 2 tabs daily (500mg - 400mg unit)
     Dates: start: 200806
  7. CALCIUM W/VITAMIN D NOS [Concomitant]
     Indication: HYPOCALCEMIA
  8. DOXAZOSIN MESYLATE [Concomitant]
     Indication: BENIGN PROSTATIC HYPERPLASIA
     Dosage: 8 mg, UNK
     Route: 048
     Dates: start: 1994
  9. LEVOTHYROX [Concomitant]
     Indication: HYPOTHYROIDISM
     Dosage: 0.015 mg, QD
     Dates: start: 2007
  10. IMODIUM [Concomitant]
     Indication: DIARRHEA
     Dosage: 2 mg, QD
     Dates: start: 20110228
  11. MULTIVITAMIN [Concomitant]
     Indication: SUPPLEMENTATION THERAPY
     Dosage: DAILY DOSE 1 TABLET
     Dates: start: 1971
  12. OMEGA 3 [Concomitant]
     Indication: SUPPLEMENTATION THERAPY
     Dosage: 2000 mg, QD
     Route: 048
     Dates: start: 1980
  13. K-PHOS [Concomitant]
     Indication: SUPPLEMENTATION THERAPY
     Dosage: TOTAL DAILY DOSE: 1000MG
     Route: 048
     Dates: start: 20110508
  14. PRILOSEC [Concomitant]
     Indication: ACID REFLUX (OESOPHAGEAL)
     Dosage: UNK, PRN
     Route: 048
     Dates: start: 2009
  15. SAW PALMETTO [Concomitant]
     Indication: SUPPLEMENTATION THERAPY
     Dosage: TOTAL DAILY DOSE: 1000MG
     Route: 048
     Dates: start: 1995
  16. TESTOSTERON [Concomitant]
     Indication: IMPOTENCE OF ORGANIC ORIGIN
     Dosage: TOTAL DAILY DOSE: 7GMS
     Route: 061
     Dates: start: 2005
  17. DIOVAN [HYDROCHLOROTHIAZIDE,VALSARTAN] [Concomitant]
     Indication: HYPERTENSION
     Dosage: 160-25 mg qd
     Route: 048
     Dates: start: 1995
  18. ANTIBIOTICS [Concomitant]
     Indication: PROPHYLAXIS ANTIBIOTIC PRE-SURGICAL
     Dosage: UNK
     Dates: start: 20120119

REACTIONS (2)
  - Appendicitis perforated [Recovered/Resolved]
  - Clostridium test positive [Recovered/Resolved]
